FAERS Safety Report 25591854 (Version 1)
Quarter: 2025Q3

REPORT INFORMATION
  Report Type: Spontaneous
  Country: US (occurrence: US)
  Receive Date: 20250722
  Receipt Date: 20250722
  Transmission Date: 20251020
  Serious: No
  Sender: VANDA PHARMACEUTICALS
  Company Number: US-VANDA PHARMACEUTICALS, INC-2025TASUS007576

PATIENT
  Sex: Female
  Weight: 48.073 kg

DRUGS (1)
  1. HETLIOZ [Suspect]
     Active Substance: TASIMELTEON
     Indication: Non-24-hour sleep-wake disorder
     Dosage: 20 MILLIGRAM, QD
     Route: 065
     Dates: start: 20250429

REACTIONS (5)
  - Hallucination [Unknown]
  - Night sweats [Unknown]
  - Feeling jittery [Unknown]
  - Sleep disorder [Unknown]
  - Abnormal dreams [Unknown]
